FAERS Safety Report 7634689-0 (Version None)
Quarter: 2011Q3

REPORT INFORMATION
  Report Type: 
  Country: None (occurrence: None)
  Receive Date: 20110725
  Receipt Date: 20090930
  Transmission Date: 20111222
  Serious: Yes (Hospitalization, Other)
  Sender: FDA-Public Use
  Company Number: US-BAYER-2011-005530

PATIENT
  Age: 63 Year
  Sex: Female
  Weight: 83.9 kg

DRUGS (17)
  1. DIOVAN [Concomitant]
     Dosage: 180 MG, QD
     Route: 048
  2. CLINORIL [Concomitant]
  3. NORVASC [Concomitant]
     Dosage: 10 MG, QD
     Route: 048
  4. TRASYLOL [Suspect]
     Dosage: LOADING DOSE/INFUSION RATE ILLEGIBLE
     Route: 042
     Dates: start: 20060130, end: 20060130
  5. LASIX [Concomitant]
     Dosage: 20 MG, QD
     Route: 048
     Dates: start: 20050927
  6. ZOCOR [Concomitant]
     Dosage: 40 MG, QD
     Route: 048
  7. MANNITOL [Concomitant]
     Dosage: 12.5 G, UNK
     Dates: start: 20060130, end: 20060130
  8. COUMADIN [Concomitant]
     Indication: PRODUCT USED FOR UNKNOWN INDICATION
     Dosage: UNK
     Dates: start: 20060101
  9. TRASYLOL [Suspect]
     Indication: MITRAL VALVE REPLACEMENT
     Dosage: 200CC PUMP PRIME
     Route: 042
     Dates: start: 20060130, end: 20060130
  10. CEFAZOLIN [Concomitant]
     Dosage: 2 G, UNK
     Route: 042
  11. CELEBREX [Concomitant]
  12. DIOVAN [Concomitant]
     Dosage: 180 MG, QD
     Route: 048
  13. POTASSIUM [Concomitant]
     Dosage: 20 MEQ, QD
     Route: 048
  14. PRINIVIL [Concomitant]
     Dosage: 40 MG, UNK
     Route: 048
  15. LISINOPRIL [Concomitant]
  16. LASIX [Concomitant]
     Dosage: 40 MG, QD
     Route: 048
     Dates: start: 20050927
  17. HEPARIN [Concomitant]
     Dosage: 37000 U, UNK
     Route: 042
     Dates: start: 20060130, end: 20060130

REACTIONS (14)
  - RENAL INJURY [None]
  - NERVOUSNESS [None]
  - RENAL FAILURE [None]
  - PAIN [None]
  - ANHEDONIA [None]
  - PSYCHIATRIC SYMPTOM [None]
  - UNEVALUABLE EVENT [None]
  - FEAR OF DEATH [None]
  - MULTI-ORGAN FAILURE [None]
  - DEPRESSION [None]
  - ANXIETY [None]
  - FEAR [None]
  - INJURY [None]
  - EMOTIONAL DISTRESS [None]
